FAERS Safety Report 12850238 (Version 5)
Quarter: 2017Q1

REPORT INFORMATION
  Report Type: Report from Study
  Country: US (occurrence: US)
  Receive Date: 20161014
  Receipt Date: 20170216
  Transmission Date: 20170428
  Serious: Yes (Hospitalization, Disabling, Other)
  Sender: FDA-Public Use
  Company Number: US-BAYER-2016-156919

PATIENT
  Age: 64 Year
  Sex: Male

DRUGS (6)
  1. ADEMPAS [Suspect]
     Active Substance: RIOCIGUAT
     Indication: PULMONARY ARTERIAL HYPERTENSION
     Dosage: 1.5 MG, TID
     Dates: start: 20160728
  2. ADEMPAS [Suspect]
     Active Substance: RIOCIGUAT
     Indication: PULMONARY ARTERIAL HYPERTENSION
     Dosage: 1 MG, TID
  3. ADEMPAS [Suspect]
     Active Substance: RIOCIGUAT
     Indication: PULMONARY ARTERIAL HYPERTENSION
     Dosage: 1.5 MG, TID
     Dates: start: 20160628
  4. ADEMPAS [Suspect]
     Active Substance: RIOCIGUAT
     Indication: PULMONARY ARTERIAL HYPERTENSION
     Dosage: 1 MG, TID
  5. ADEMPAS [Suspect]
     Active Substance: RIOCIGUAT
     Indication: PULMONARY ARTERIAL HYPERTENSION
     Dosage: 0.75 MG (SPLIT 1.5 MG TAB)
  6. ADEMPAS [Suspect]
     Active Substance: RIOCIGUAT
     Indication: PULMONARY ARTERIAL HYPERTENSION
     Dosage: 1.5 MG, TID
     Route: 048

REACTIONS (19)
  - Fluid overload [None]
  - Constipation [None]
  - Pneumonia [None]
  - Peripheral swelling [None]
  - Dyspnoea at rest [None]
  - Respiratory distress [None]
  - Acute kidney injury [None]
  - Pneumonia [None]
  - Myalgia [None]
  - Pneumonia [None]
  - Productive cough [None]
  - Wrong technique in product usage process [None]
  - Pain in extremity [None]
  - Hospitalisation [None]
  - Ascites [None]
  - Ocular icterus [None]
  - Fatigue [None]
  - Joint swelling [None]
  - Abasia [None]

NARRATIVE: CASE EVENT DATE: 201608
